FAERS Safety Report 9347435 (Version 2)
Quarter: 2013Q2

REPORT INFORMATION
  Report Type: Spontaneous
  Country: US (occurrence: US)
  Receive Date: 20130613
  Receipt Date: 20130620
  Transmission Date: 20140414
  Serious: No
  Sender: FDA-Public Use
  Company Number: US-009507513-1306USA003966

PATIENT
  Age: 68 Year
  Sex: Female

DRUGS (4)
  1. EMEND [Suspect]
     Indication: PROPHYLAXIS OF NAUSEA AND VOMITING
     Dosage: 125 MG, FIRST DOSE FROM THE TRI-PACK
     Route: 048
     Dates: start: 20130606
  2. SEROQUEL [Concomitant]
  3. XANAX [Concomitant]
  4. PRINIVIL [Concomitant]
     Route: 048

REACTIONS (3)
  - Capsule physical issue [Not Recovered/Not Resolved]
  - Nausea [Not Recovered/Not Resolved]
  - Underdose [Unknown]
